FAERS Safety Report 7039857-7 (Version None)
Quarter: 2010Q4

REPORT INFORMATION
  Report Type: 
  Country: None (occurrence: None)
  Receive Date: 20101012
  Receipt Date: 20101005
  Transmission Date: 20110411
  Serious: Yes (Hospitalization)
  Sender: FDA-Public Use
  Company Number: DE-AMGEN-QUU425571

PATIENT
  Sex: Male

DRUGS (7)
  1. ENBREL [Suspect]
     Indication: PSORIATIC ARTHROPATHY
     Dosage: 50 MG WEEKLY
     Route: 058
     Dates: start: 20090801, end: 20091001
  2. ENBREL [Suspect]
     Dosage: 50 MG WEEKLY
     Route: 058
     Dates: start: 20100101, end: 20100202
  3. FOLIC ACID [Concomitant]
  4. PREDNISOLONE [Concomitant]
  5. LANTAREL [Concomitant]
     Indication: PSORIATIC ARTHROPATHY
     Route: 065
     Dates: start: 20030708, end: 20061023
  6. LANTAREL [Concomitant]
     Route: 065
     Dates: start: 20061123
  7. LEVOTHYROXINE SODIUM [Concomitant]

REACTIONS (1)
  - MALIGNANT MELANOMA [None]
